FAERS Safety Report 5262477-1 (Version None)
Quarter: 2007Q1

REPORT INFORMATION
  Report Type: 
  Country: None (occurrence: None)
  Receive Date: 20070312
  Receipt Date: 20070302
  Transmission Date: 20070707
  Serious: Yes (Hospitalization, Disabling)
  Sender: FDA-Public Use
  Company Number: CA-ROCHE-483876

PATIENT
  Age: 87 Year
  Sex: Female
  Weight: 59.1 kg

DRUGS (15)
  1. TAMIFLU [Suspect]
     Route: 048
     Dates: start: 20070202, end: 20070203
  2. TAMIFLU [Suspect]
     Dosage: INDICATION REPORTED AS INFLUENZA.
     Route: 048
     Dates: start: 20070204, end: 20070207
  3. ATORVASTATIN [Concomitant]
     Dosage: FREQUENCY: ONCE IN THE EVENING.
     Route: 048
     Dates: start: 20070103
  4. ACETYLSALICYLIC ACID SRT [Concomitant]
     Route: 048
     Dates: start: 20070103
  5. DOCUSATE SODIUM [Concomitant]
     Dosage: DRUG REPORTED AS DUCOSATE SODIUM.
     Route: 048
     Dates: start: 20070103
  6. ENALAPRIL MALEATE [Concomitant]
     Route: 048
     Dates: start: 20070103
  7. METOPROLOL SUCCINATE [Concomitant]
     Route: 048
     Dates: start: 20070103
  8. VITALUX [Concomitant]
     Dosage: DRUG REPORTED AS MULTIVITAMIN WITHMINERALS / VITALUX-S.
     Route: 048
     Dates: start: 20070103
  9. NIFEDIPINE [Concomitant]
     Route: 048
     Dates: start: 20070103
  10. BISACODYL SUPPOSITORY [Concomitant]
     Route: 054
     Dates: start: 20070103
  11. GLYCERINE SUPPOSITORY [Concomitant]
     Dosage: DRUG REPORTED AS GLYCERIN ADULT SUPPOSITORY. DOSAGE REGIMEN REPORTED AS EVERY 48 HOURS AS NEEDED.
     Route: 054
     Dates: start: 20070103
  12. LACTULOSE [Concomitant]
     Dosage: STRENGHT REPORTED AS 333.5 G/ 500 ML. DOSAGE REGIMEN REPORTED AS 20.1 GR / 30 ML TWICE DAILY.
     Route: 048
     Dates: start: 20070103
  13. MICROLAX [Concomitant]
     Dosage: DOSAGE REGIMEN REPORTED AS UD (AS DIRECTED) AS NEEDED.
     Route: 054
     Dates: start: 20070103
  14. SENNA GLYCOSIDES [Concomitant]
     Dosage: DRUG REPORTED AS SENNA GLUCOSIDES. AT NIGHT.
     Route: 048
     Dates: start: 20070103
  15. MACROBID [Concomitant]
     Route: 048
     Dates: start: 20070115, end: 20070122

REACTIONS (2)
  - INFLUENZA [None]
  - TRANSIENT ISCHAEMIC ATTACK [None]
